FAERS Safety Report 4636710-0 (Version None)
Quarter: 2005Q2

REPORT INFORMATION
  Report Type: 
  Country: None (occurrence: None)
  Receive Date: 20050414
  Receipt Date: 20050322
  Transmission Date: 20051028
  Serious: Yes (Other)
  Sender: FDA-Public Use
  Company Number: 2005055870

PATIENT
  Sex: Male

DRUGS (3)
  1. CELEBREX [Suspect]
     Indication: ILL-DEFINED DISORDER
  2. AMITRIPTYLINE HCL [Suspect]
     Indication: ILL-DEFINED DISORDER
  3. LEVOFLOXACIN [Suspect]
     Indication: ILL-DEFINED DISORDER

REACTIONS (17)
  - ABNORMAL DREAMS [None]
  - AGGRESSION [None]
  - ANURIA [None]
  - APHAGIA [None]
  - ASTHENIA [None]
  - EMOTIONAL DISORDER [None]
  - HEPATIC CYST [None]
  - HEPATIC ENZYME ABNORMAL [None]
  - HEPATIC PAIN [None]
  - HOMICIDAL IDEATION [None]
  - INSOMNIA [None]
  - PAIN [None]
  - PARAESTHESIA [None]
  - PSYCHOTIC DISORDER [None]
  - RENAL PAIN [None]
  - SUICIDAL IDEATION [None]
  - URINARY RETENTION [None]
